FAERS Safety Report 17969640 (Version 1)
Quarter: 2020Q3

REPORT INFORMATION
  Report Type: Spontaneous
  Country: CN (occurrence: CN)
  Receive Date: 20200701
  Receipt Date: 20200701
  Transmission Date: 20201103
  Serious: Yes (Other)
  Sender: FDA-Public Use
  Company Number: CN-GE HEALTHCARE LIFE SCIENCES-2020CSU002654

PATIENT

DRUGS (3)
  1. SODIUM CHLORIDE. [Concomitant]
     Active Substance: SODIUM CHLORIDE
     Dosage: 30 ML, SINGLE
     Route: 040
     Dates: start: 20200528, end: 20200528
  2. OMNIPAQUE [Suspect]
     Active Substance: IOHEXOL
     Indication: COMPUTERISED TOMOGRAM ABDOMEN
     Dosage: 80 ML, SINGLE
     Route: 040
     Dates: start: 20200528, end: 20200528
  3. OMNIPAQUE [Suspect]
     Active Substance: IOHEXOL
     Indication: PHYSICAL EXAMINATION

REACTIONS (6)
  - Muscle twitching [Recovered/Resolved]
  - Bronchospasm [Recovered/Resolved]
  - Hypoaesthesia [Recovered/Resolved]
  - Muscle spasms [Recovered/Resolved]
  - Dyspnoea [Recovered/Resolved]
  - Chest discomfort [Recovered/Resolved]

NARRATIVE: CASE EVENT DATE: 20200528
